FAERS Safety Report 5735375-4 (Version None)
Quarter: 2008Q2

REPORT INFORMATION
  Report Type: 
  Country: None (occurrence: None)
  Receive Date: 20080505
  Receipt Date: 20080221
  Transmission Date: 20081010
  Serious: Yes (Life-Threatening, Hospitalization)
  Sender: FDA-Public Use
  Company Number: PHEH2007US16032

PATIENT
  Age: 73 Year
  Sex: Male
  Weight: 81.2 kg

DRUGS (3)
  1. EXELON [Suspect]
     Indication: DEMENTIA ALZHEIMER'S TYPE
     Dosage: 9.5 MG/DAY, QD, TRANSDERMAL
     Route: 062
     Dates: start: 20071105, end: 20071204
  2. NAMENDA [Concomitant]
  3. SEROQUEL [Concomitant]

REACTIONS (1)
  - GRAND MAL CONVULSION [None]
